FAERS Safety Report 9281803 (Version 2)
Quarter: 2014Q2

REPORT INFORMATION
  Report Type: Spontaneous
  Country: US (occurrence: US)
  Receive Date: 20130510
  Receipt Date: 20140408
  Transmission Date: 20141212
  Serious: Yes (Hospitalization)
  Sender: FDA-Public Use
  Company Number: US-B.I. PHARMACEUTICALS,INC./RIDGEFIELD-2013-BI-12708BP

PATIENT
  Age: 72 Year
  Sex: Female
  Weight: 51.65 kg

DRUGS (18)
  1. PRADAXA [Suspect]
     Indication: ANTICOAGULANT THERAPY
     Dosage: 300 MG
     Route: 048
     Dates: start: 20110203, end: 201104
  2. PRADAXA [Suspect]
     Dosage: 300 MG
     Route: 065
     Dates: end: 20120725
  3. DIOVAN [Concomitant]
     Dosage: 160 MG
     Route: 048
  4. IMDUR [Concomitant]
     Dosage: 60 MG
     Route: 048
  5. ZOLOFT [Concomitant]
     Dosage: 50 MG
     Route: 048
     Dates: start: 2002
  6. SPIRIVA [Concomitant]
     Route: 055
     Dates: start: 2011
  7. LASIX [Concomitant]
     Dosage: 40 MG
     Route: 065
     Dates: start: 2000
  8. LASIX [Concomitant]
     Dosage: 60 MG
     Route: 065
     Dates: start: 2000
  9. COREG [Concomitant]
     Dosage: 25 MG
     Route: 065
     Dates: start: 2001
  10. COREG [Concomitant]
     Dosage: 50 MG
     Route: 065
     Dates: start: 2001
  11. LUMIGAN [Concomitant]
     Route: 065
     Dates: start: 1984
  12. OPTIVAR [Concomitant]
     Route: 065
  13. ASMANEX [Concomitant]
     Route: 055
  14. TRACLEER [Concomitant]
     Indication: PULMONARY HYPERTENSION
     Dosage: 250 MG
     Route: 048
     Dates: start: 2008
  15. ALBUTEROL [Concomitant]
     Route: 055
  16. ZENAPAX [Concomitant]
     Route: 055
  17. REVATIO [Concomitant]
     Indication: PULMONARY HYPERTENSION
     Dosage: 60 MG
     Route: 065
     Dates: start: 2011
  18. SENSIPAR [Concomitant]
     Dosage: 60 MG
     Route: 065
     Dates: start: 2011

REACTIONS (4)
  - Lower gastrointestinal haemorrhage [Unknown]
  - Upper gastrointestinal haemorrhage [Unknown]
  - Anaemia [Unknown]
  - Coagulopathy [Unknown]
